FAERS Safety Report 6689248-3 (Version None)
Quarter: 2010Q2

REPORT INFORMATION
  Report Type: 
  Country: None (occurrence: None)
  Receive Date: 20100420
  Receipt Date: 20100419
  Transmission Date: 20101027
  Serious: Yes (Other)
  Sender: FDA-Public Use
  Company Number: ES-MERCK-1003ESP00037

PATIENT
  Age: 35 Year
  Sex: Female

DRUGS (7)
  1. ISENTRESS [Suspect]
     Indication: HIV INFECTION
     Route: 048
     Dates: start: 20080930, end: 20080101
  2. ISENTRESS [Suspect]
     Route: 048
     Dates: start: 20100301
  3. DARUNAVIR [Concomitant]
     Indication: HIV INFECTION
     Route: 048
     Dates: start: 20100301
  4. DARUNAVIR [Concomitant]
     Route: 048
     Dates: start: 20080930, end: 20080101
  5. RITONAVIR [Concomitant]
     Indication: HIV INFECTION
     Route: 048
     Dates: start: 20100301
  6. RITONAVIR [Concomitant]
     Route: 048
     Dates: start: 20080930, end: 20080101
  7. EMTRICITABINE AND TENOFOVIR DISOPROXIL FUMARATE [Concomitant]
     Indication: HIV INFECTION
     Route: 048
     Dates: start: 20080930, end: 20080101

REACTIONS (4)
  - CERVICAL DYSPLASIA [None]
  - DRUG EXPOSURE DURING PREGNANCY [None]
  - NO ADVERSE EVENT [None]
  - OESOPHAGEAL CANDIDIASIS [None]
